FAERS Safety Report 6668465-2 (Version None)
Quarter: 2010Q2

REPORT INFORMATION
  Report Type: 
  Country: None (occurrence: None)
  Receive Date: 20100406
  Receipt Date: 20100329
  Transmission Date: 20101027
  Serious: Yes (Hospitalization)
  Sender: FDA-Public Use
  Company Number: PHHY2010FI19961

PATIENT
  Sex: Female

DRUGS (7)
  1. EXELON [Suspect]
     Indication: DEMENTIA ALZHEIMER'S TYPE
     Dosage: 4.6 MG, QD
     Route: 062
     Dates: start: 20100119, end: 20100324
  2. TRILEPTAL [Concomitant]
     Indication: EPILEPSY
     Dosage: 300 MG, BID
     Dates: start: 20020101
  3. AMARYL [Concomitant]
     Indication: DIABETES MELLITUS
     Dosage: 3MG PER DAY
     Dates: start: 20050608
  4. ORLOC [Concomitant]
     Indication: ARRHYTHMIA
     Dosage: 5MG PER DAY
     Dates: start: 20030129
  5. DIGOXIN [Concomitant]
     Indication: ARRHYTHMIA
     Dosage: ONE TABLET PER DAY
  6. VERPAMIL [Concomitant]
     Indication: ARRHYTHMIA
     Dosage: ONE TABLET PER DAY
  7. PRIMASPAN [Concomitant]
     Indication: DIABETES MELLITUS
     Dosage: ONE TABLET PER DAY

REACTIONS (4)
  - DIZZINESS [None]
  - EPILEPSY [None]
  - HEAD INJURY [None]
  - SUTURE INSERTION [None]
